FAERS Safety Report 23830301 (Version 2)
Quarter: 2024Q2

REPORT INFORMATION
  Report Type: Spontaneous
  Country: PT (occurrence: PT)
  Receive Date: 20240508
  Receipt Date: 20240522
  Transmission Date: 20240715
  Serious: Yes (Hospitalization)
  Sender: FDA-Public Use
  Company Number: None

PATIENT
  Age: 75 Year
  Sex: Female

DRUGS (8)
  1. PACLITAXEL [Suspect]
     Active Substance: PACLITAXEL
     Indication: Ovarian epithelial cancer
     Dosage: 227MG IN 500ML; INFUSION IN 3 HOURS; CYCLES OF 21/21 DAYS
     Dates: start: 20240202, end: 20240405
  2. GRANISETRON [Concomitant]
     Active Substance: GRANISETRON
     Dosage: 1 MG
  3. DEXAMETHASONE [Concomitant]
     Active Substance: DEXAMETHASONE
     Dosage: 12MG
  4. MEXAZOLAM [Concomitant]
     Active Substance: MEXAZOLAM
  5. CARBOPLATIN [Concomitant]
     Active Substance: CARBOPLATIN
     Dosage: STRENGTH: 10
  6. FAMOTIDINE [Concomitant]
     Active Substance: FAMOTIDINE
     Dosage: 20 MG
  7. PANTOPRAZOLE [Concomitant]
     Active Substance: PANTOPRAZOLE
  8. CLEMASTINE [Concomitant]
     Active Substance: CLEMASTINE
     Dosage: 2 MG

REACTIONS (7)
  - Pruritus [Recovered/Resolved]
  - Erythema [Recovered/Resolved]
  - Nausea [Recovered/Resolved]
  - Dyspnoea [Recovered/Resolved]
  - Hyperhidrosis [Recovered/Resolved]
  - Oedema peripheral [Recovered/Resolved]
  - Feeling hot [Recovered/Resolved]

NARRATIVE: CASE EVENT DATE: 20240405
